FAERS Safety Report 7753250-0 (Version None)
Quarter: 2011Q3

REPORT INFORMATION
  Report Type: 
  Country: None (occurrence: None)
  Receive Date: 20110915
  Receipt Date: 20110617
  Transmission Date: 20111222
  Serious: No
  Sender: FDA-Public Use
  Company Number: US-GLAXOSMITHKLINE-A0931815A

PATIENT
  Age: 28 Year
  Sex: Male

DRUGS (1)
  1. NICORETTE [Suspect]
     Indication: EX-TOBACCO USER
     Route: 048
     Dates: start: 20110530, end: 20110609

REACTIONS (3)
  - MUSCLE SPASMS [None]
  - DYSPNOEA [None]
  - CHEST PAIN [None]
